FAERS Safety Report 4432053-9 (Version None)
Quarter: 2004Q3

REPORT INFORMATION
  Report Type: 
  Country: None (occurrence: None)
  Receive Date: 20040825
  Receipt Date: 20040818
  Transmission Date: 20050211
  Serious: Yes (Death)
  Sender: FDA-Public Use
  Company Number: PHHO2004CO11716

PATIENT
  Age: 35 Year
  Sex: Male

DRUGS (2)
  1. TRILEPTAL [Suspect]
     Indication: TEMPORAL LOBE EPILEPSY
     Dosage: 600 MG, TID
     Route: 048
     Dates: start: 20020101
  2. URBADAN [Concomitant]
     Dosage: UNK, UNK

REACTIONS (3)
  - BLOOD CYANIDE [None]
  - DROWNING [None]
  - STATUS EPILEPTICUS [None]
